FAERS Safety Report 8098710-0 (Version None)
Quarter: 2012Q1

REPORT INFORMATION
  Report Type: 
  Country: None (occurrence: None)
  Receive Date: 20120131
  Receipt Date: 20120126
  Transmission Date: 20120608
  Serious: Yes (Life-Threatening, Other)
  Sender: FDA-Public Use
  Company Number: CHPA2012US002162

PATIENT
  Age: 51 Year
  Sex: Female

DRUGS (3)
  1. EXCEDRIN (MIGRAINE) [Suspect]
     Indication: MIGRAINE
     Dosage: 2 DF, PRN
     Route: 048
     Dates: start: 20040101
  2. NEXIUM [Concomitant]
     Indication: GASTROINTESTINAL DISORDER
     Dosage: UNK DF, UNK
  3. EXCEDRIN EXTRA STRENGTH TABLETS [Suspect]
     Indication: HEADACHE
     Dosage: 1 DF, PRN
     Route: 048
     Dates: start: 20040101

REACTIONS (7)
  - GASTRITIS [None]
  - FEELING ABNORMAL [None]
  - DEHYDRATION [None]
  - VOMITING [None]
  - UNDERDOSE [None]
  - OVERDOSE [None]
  - DRUG ADMINISTRATION ERROR [None]
